FAERS Safety Report 7444181 (Version 5)
Quarter: 2012Q4

REPORT INFORMATION
  Report Type: 
  Country: US (occurrence: US)
  Receive Date: 20100628
  Receipt Date: 20121226
  Transmission Date: 20130627
  Serious: Yes (Other)
  Sender: FDA-Public Use
  Company Number: US-PFIZER INC-2007069359

PATIENT
  Age: 69 Year
  Sex: Female
  Weight: 81.8 kg

DRUGS (6)
  1. XALATAN [Suspect]
     Indication: GLAUCOMA
     Dosage: 1 Gtt in each eye
     Dates: start: 2004
  2. METFORMIN [Concomitant]
  3. GLYBURIDE [Concomitant]
     Dosage: 5 mg, UNK
  4. HYZAAR [Concomitant]
     Indication: BLOOD PRESSURE HIGH
  5. ATENOLOL [Concomitant]
     Indication: BLOOD PRESSURE HIGH
  6. POTASSIUM [Concomitant]

REACTIONS (4)
  - Visual acuity reduced [Unknown]
  - Asthenopia [Recovering/Resolving]
  - Sinus disorder [Recovering/Resolving]
  - Hypertension [Unknown]
